FAERS Safety Report 4307128-5 (Version None)
Quarter: 2004Q1

REPORT INFORMATION
  Report Type: 
  Country: None (occurrence: None)
  Receive Date: 20040225
  Receipt Date: 20040213
  Transmission Date: 20041129
  Serious: Yes (Other)
  Sender: FDA-Public Use
  Company Number: DE-JNJFOC-20031201204

PATIENT
  Age: 48 Year
  Sex: Female

DRUGS (3)
  1. RISPERDAL [Suspect]
     Indication: PSYCHOTIC DISORDER
     Dosage: 2 MG,  IN 1 DAY, ORAL
     Route: 048
     Dates: start: 20030201
  2. FENTANYL [Suspect]
     Indication: DEPRESSED LEVEL OF CONSCIOUSNESS
  3. CARBAMAZEPINE [Concomitant]

REACTIONS (7)
  - AKATHISIA [None]
  - DRUG INTERACTION [None]
  - DRUG LEVEL INCREASED [None]
  - EXTRAPYRAMIDAL DISORDER [None]
  - FEMUR FRACTURE [None]
  - POST PROCEDURAL COMPLICATION [None]
  - RESTLESSNESS [None]
